FAERS Safety Report 8380945-0 (Version None)
Quarter: 2012Q2

REPORT INFORMATION
  Report Type: 
  Country: None (occurrence: None)
  Receive Date: 20120515
  Receipt Date: 20120430
  Transmission Date: 20120825
  Serious: Yes (Death)
  Sender: FDA-Public Use
  Company Number: AEGTM201200248

PATIENT

DRUGS (1)
  1. ALBUMIN (HUMAN) [Suspect]
     Indication: DIALYSIS
     Dosage: IV
     Route: 042

REACTIONS (2)
  - PRODUCT CONTAMINATION MICROBIAL [None]
  - CONVULSION [None]
